FAERS Safety Report 10016782 (Version 1)
Quarter: 2014Q1

REPORT INFORMATION
  Report Type: Report from Study
  Country: NL (occurrence: NL)
  Receive Date: 20140318
  Receipt Date: 20140318
  Transmission Date: 20141002
  Serious: Yes (Death)
  Sender: FDA-Public Use
  Company Number: PHHY2014NL031601

PATIENT
  Age: 74 Year
  Sex: Female

DRUGS (2)
  1. ACLASTA [Suspect]
     Indication: OSTEOPOROSIS
     Dosage: 5 MG, PER 52 WEEKS
     Route: 042
     Dates: start: 20120614
  2. ACLASTA [Suspect]
     Dosage: 5 MG, PER 52 WEEKS
     Route: 042
     Dates: start: 20130620

REACTIONS (1)
  - Death [Fatal]
